FAERS Safety Report 15124645 (Version 2)
Quarter: 2018Q3

REPORT INFORMATION
  Report Type: Spontaneous
  Country: US (occurrence: US)
  Receive Date: 20180710
  Receipt Date: 20180711
  Transmission Date: 20181010
  Serious: No
  Sender: FDA-Public Use
  Company Number: US-PFIZER INC-2018275730

PATIENT
  Age: 58 Year
  Sex: Female
  Weight: 62.59 kg

DRUGS (3)
  1. LYRICA [Suspect]
     Active Substance: PREGABALIN
     Dosage: 75 MG, 2X/DAY (SECOND AND THIRD WEEK)
  2. LYRICA [Suspect]
     Active Substance: PREGABALIN
     Dosage: 75 MG, 1X/DAY
  3. LYRICA [Suspect]
     Active Substance: PREGABALIN
     Dosage: 75 MG, 1X/DAY (75MG CAPSULE BY MOUTH EACH NIGHT FOR ONE WEEK)
     Route: 048

REACTIONS (3)
  - Intentional product misuse [Unknown]
  - Asthenopia [Unknown]
  - Product use issue [Unknown]
